FAERS Safety Report 20680884 (Version 1)
Quarter: 2022Q2

REPORT INFORMATION
  Report Type: Report from Study
  Country: IN (occurrence: IN)
  Receive Date: 20220406
  Receipt Date: 20220406
  Transmission Date: 20220720
  Serious: Yes (Death, Other)
  Sender: FDA-Public Use
  Company Number: IN-NOVARTISPH-PHHY2017IN156801

PATIENT
  Sex: Female

DRUGS (2)
  1. GLIVEC [Suspect]
     Active Substance: IMATINIB MESYLATE
     Indication: Chronic myeloid leukaemia
     Dosage: 400 MG
     Route: 065
  2. GLIVEC [Suspect]
     Active Substance: IMATINIB MESYLATE
     Dosage: 600 MG (1 X 400MG + 2 X 100MG TABLETS)
     Route: 065

REACTIONS (3)
  - Death [Fatal]
  - Chronic myeloid leukaemia [Unknown]
  - Therapeutic response decreased [Unknown]
